FAERS Safety Report 23699676 (Version 4)
Quarter: 2024Q2

REPORT INFORMATION
  Report Type: Report from Study
  Country: US (occurrence: US)
  Receive Date: 20240403
  Receipt Date: 20240608
  Transmission Date: 20240716
  Serious: Yes (Death, Hospitalization, Other)
  Sender: FDA-Public Use
  Company Number: US-ABBVIE-5703127

PATIENT
  Sex: Male

DRUGS (6)
  1. VENCLEXTA [Suspect]
     Active Substance: VENETOCLAX
     Indication: Myeloproliferative neoplasm
     Dosage: FORM STRENGTH: 100 MILLIGRAM; FOUR TABLETS BY MOUTH DAILY THEREAFTER, ?FIRST AND LAST ADMIN DATE:...
     Route: 048
  2. VENCLEXTA [Suspect]
     Active Substance: VENETOCLAX
     Indication: Myeloproliferative neoplasm
     Dosage: FORM STRENGTH: 100 MG, FIRST AND LAST ADMIN DATE: 2023
     Route: 048
  3. VENCLEXTA [Suspect]
     Active Substance: VENETOCLAX
     Indication: Myeloproliferative neoplasm
     Dosage: FORM STRENGTH: 100 MILLIGRAM; TAKE ONE TABLET BY MOUTH ON DAY ONE,?FIRST AND LAST ADMIN DATE: 2023
     Route: 048
  4. VENCLEXTA [Suspect]
     Active Substance: VENETOCLAX
     Indication: Myeloproliferative neoplasm
     Dosage: FORM STRENGTH: 100 MG; TWO TABLETS ON DAY TWO, ?FIRST AND LAST ADMIN DATE: 2023
     Route: 048
  5. VENCLEXTA [Suspect]
     Active Substance: VENETOCLAX
     Indication: Myeloproliferative neoplasm
     Dosage: FORM STRENGTH: 100 MG; THREE TABLETS ON DAY 3, ?FIRST AND LAST ADMIN DATE: 2023
     Route: 048
  6. VENCLEXTA [Suspect]
     Active Substance: VENETOCLAX
     Indication: Myeloproliferative neoplasm
     Dosage: LAST ADMIN DATE: 2023
     Route: 048
     Dates: start: 20231005

REACTIONS (4)
  - Death [Fatal]
  - Off label use [Unknown]
  - Chronic myelomonocytic leukaemia [Not Recovered/Not Resolved]
  - Drug ineffective [Unknown]

NARRATIVE: CASE EVENT DATE: 20230101
